FAERS Safety Report 24728738 (Version 1)
Quarter: 2024Q4

REPORT INFORMATION
  Report Type: Report from Study
  Country: US (occurrence: US)
  Receive Date: 20241212
  Receipt Date: 20241212
  Transmission Date: 20250114
  Serious: Yes (Other)
  Sender: ABBVIE
  Company Number: US-ABBVIE-6011953

PATIENT
  Age: 47 Year
  Sex: Female

DRUGS (3)
  1. HUMIRA [Suspect]
     Active Substance: ADALIMUMAB
     Indication: Psoriatic arthropathy
     Dosage: 40MG/0.4ML
     Route: 058
     Dates: end: 202308
  2. HUMIRA [Suspect]
     Active Substance: ADALIMUMAB
     Indication: Psoriasis
     Dosage: 40MG/0.4ML
     Route: 058
     Dates: end: 2024
  3. HUMIRA [Suspect]
     Active Substance: ADALIMUMAB
     Dosage: 40MG/0.4ML FIRST ADMIN DATE: 2024
     Route: 058
     Dates: end: 202411

REACTIONS (9)
  - Haemorrhoid operation [Recovered/Resolved]
  - Osteotomy [Unknown]
  - Device use error [Not Recovered/Not Resolved]
  - Arthropod bite [Recovering/Resolving]
  - Iritis [Unknown]
  - Arthralgia [Recovering/Resolving]
  - Arthropod bite [Recovered/Resolved]
  - Neoplasm [Recovered/Resolved]
  - Hip surgery [Recovered/Resolved]

NARRATIVE: CASE EVENT DATE: 20211118
